FAERS Safety Report 5574035-X (Version None)
Quarter: 2007Q4

REPORT INFORMATION
  Report Type: 
  Country: None (occurrence: None)
  Receive Date: 20071221
  Receipt Date: 20071102
  Transmission Date: 20080405
  Serious: Yes (Hospitalization)
  Sender: FDA-Public Use
  Company Number: 2007S1011307

PATIENT
  Age: 78 Year
  Sex: Male

DRUGS (3)
  1. FLUTAMIDE [Suspect]
     Indication: PROSTATE CANCER
     Dosage: 750 MG;NULL_1_DAY
     Dates: start: 20030601
  2. CYPROTERONE (CYPROTERONE) [Suspect]
     Indication: PROSTATE CANCER
     Dosage: NULL_1_DAY
     Dates: start: 20040101
  3. LEUPRORELIN (LEUPRORELIN) [Concomitant]

REACTIONS (3)
  - HEPATIC FAILURE [None]
  - HEPATITIS ACUTE [None]
  - HEPATOTOXICITY [None]
